FAERS Safety Report 9000046 (Version 2)
Quarter: 2013Q1

REPORT INFORMATION
  Report Type: Spontaneous
  Country: IT (occurrence: IT)
  Receive Date: 20130102
  Receipt Date: 20130201
  Transmission Date: 20140127
  Serious: Yes (Other)
  Sender: FDA-Public Use
  Company Number: IT-PFIZER INC-2012332653

PATIENT
  Age: 48 Year
  Sex: Female
  Weight: 50 kg

DRUGS (11)
  1. PANTOPAN [Suspect]
     Indication: GASTROOESOPHAGEAL REFLUX DISEASE
     Dosage: 40 MG, DAILY
     Route: 048
     Dates: start: 20121012, end: 20121115
  2. TORVAST [Concomitant]
     Indication: TYPE IIA HYPERLIPIDAEMIA
     Dosage: 10 MG, UNK
     Route: 048
  3. EUTIROX [Concomitant]
     Indication: HYPOTHYROIDISM
     Dosage: 50 MG, UNK
     Route: 048
     Dates: start: 2001
  4. EUTIROX [Concomitant]
     Dosage: UNK
     Route: 048
     Dates: start: 2001
  5. MERCILON [Concomitant]
     Indication: DYSMENORRHOEA
     Dosage: 0,15 MG DESOGESTREL+0,02 MG ETHYNILESTRA
     Route: 048
     Dates: start: 19940101, end: 20121115
  6. LEXOTAN [Concomitant]
     Dosage: 2.5 MG/ML 20 DROPS/DAY
     Route: 048
  7. ZANTAC [Concomitant]
     Indication: GASTROOESOPHAGEAL REFLUX DISEASE
     Dosage: 300 MG, UNK
     Route: 048
  8. TENORMIN [Concomitant]
     Indication: SUPRAVENTRICULAR TACHYCARDIA
     Dosage: 50 MG, UNK
     Route: 048
  9. IODINE [Concomitant]
     Indication: HYPOTHYROIDISM
     Dosage: UNK
     Dates: start: 2001
  10. LIDOCAINE [Concomitant]
     Indication: OSTEITIS
     Dosage: UNK
     Dates: start: 2007
  11. CORTISONE [Concomitant]
     Indication: OSTEITIS
     Dosage: UNK
     Dates: start: 2007

REACTIONS (1)
  - Nephritis [Recovered/Resolved]
